FAERS Safety Report 7952916-7 (Version None)
Quarter: 2011Q4

REPORT INFORMATION
  Report Type: 
  Country: None (occurrence: None)
  Receive Date: 20111129
  Receipt Date: 20111117
  Transmission Date: 20120403
  Serious: Yes (Hospitalization)
  Sender: FDA-Public Use
  Company Number: LEO-2011-01014

PATIENT
  Age: 79 Year
  Sex: Female

DRUGS (6)
  1. OMEPRAZOLE [Concomitant]
  2. INNOHEP [Suspect]
     Indication: THROMBOSIS PROPHYLAXIS
     Dosage: 1 D, SUBCUTANEOUS
     Route: 058
     Dates: start: 20110401, end: 20110706
  3. ATROVENT [Concomitant]
  4. SETRALINA (SERTRALINE HYDROCHLORIDE) [Suspect]
     Indication: DEPRESSION
     Dosage: 1 D, ORAL
     Route: 048
     Dates: start: 20110101, end: 20110706
  5. ACETAMINOPHEN [Concomitant]
  6. FUROSEMIDA (FUROSEMIDE SODIUM) [Concomitant]

REACTIONS (10)
  - HAEMATOMA [None]
  - EXTRAVASATION [None]
  - PALLOR [None]
  - HAEMATOCRIT DECREASED [None]
  - ARTERIAL HAEMORRHAGE [None]
  - HAEMOGLOBIN DECREASED [None]
  - ABDOMINAL PAIN [None]
  - BLOOD POTASSIUM DECREASED [None]
  - VOMITING [None]
  - FALL [None]
